FAERS Safety Report 22270308 (Version 1)
Quarter: 2023Q2

REPORT INFORMATION
  Report Type: Report from Study
  Country: DE (occurrence: DE)
  Receive Date: 20230501
  Receipt Date: 20230501
  Transmission Date: 20230721
  Serious: Yes (Hospitalization, Other)
  Sender: FDA-Public Use
  Company Number: DE-UCBSA-2023020848

PATIENT
  Sex: Female

DRUGS (2)
  1. RINVOQ [Suspect]
     Active Substance: UPADACITINIB
     Indication: Product used for unknown indication
     Dosage: 15 MILLIGRAM
     Dates: start: 202006, end: 202009
  2. CERTOLIZUMAB PEGOL [Suspect]
     Active Substance: CERTOLIZUMAB PEGOL
     Indication: Product used for unknown indication
     Dosage: 200 MILLIGRAM
     Route: 065
     Dates: start: 201406, end: 202005

REACTIONS (8)
  - Fall [Recovered/Resolved]
  - Skin injury [Recovered/Resolved]
  - Atrial fibrillation [Recovered/Resolved]
  - Faecaloma [Recovered/Resolved]
  - Subarachnoid haemorrhage [Recovered/Resolved]
  - Renal failure [Recovered/Resolved]
  - COVID-19 [Recovered/Resolved]
  - Hyponatraemia [Recovered/Resolved]

NARRATIVE: CASE EVENT DATE: 20220701
